FAERS Safety Report 5573941-X (Version None)
Quarter: 2007Q4

REPORT INFORMATION
  Report Type: 
  Country: None (occurrence: None)
  Receive Date: 20071226
  Receipt Date: 20071214
  Transmission Date: 20080405
  Serious: Yes (Hospitalization)
  Sender: FDA-Public Use
  Company Number: US-GENENTECH-252170

PATIENT

DRUGS (3)
  1. RITUXIMAB [Suspect]
     Indication: MULTIPLE SCLEROSIS
  2. DURAGESIC-100 [Concomitant]
     Indication: PAIN
     Dosage: 50 MG, Q3D
     Route: 061
  3. HYDROMORPHONE HCL [Concomitant]
     Indication: PAIN
     Dosage: 4 MG, PRN
     Route: 048

REACTIONS (2)
  - INTRA-ABDOMINAL HAEMATOMA [None]
  - PERITONEAL INFECTION [None]
